FAERS Safety Report 6190756-2 (Version None)
Quarter: 2009Q2

REPORT INFORMATION
  Report Type: 
  Country: None (occurrence: None)
  Receive Date: 20090513
  Receipt Date: 20090513
  Transmission Date: 20091009
  Serious: No
  Sender: FDA-Public Use
  Company Number: None

PATIENT
  Age: 28 Year
  Sex: Male
  Weight: 79.3795 kg

DRUGS (1)
  1. LEXAPRO [Suspect]
     Indication: ANXIETY
     Dosage: 10MG DAILY PO
     Route: 048
     Dates: start: 20090510, end: 20090510

REACTIONS (6)
  - ABDOMINAL DISCOMFORT [None]
  - ASTHMA [None]
  - MUSCULOSKELETAL CHEST PAIN [None]
  - NAUSEA [None]
  - SOMNOLENCE [None]
  - VOMITING [None]
